FAERS Safety Report 13210836 (Version 1)
Quarter: 2017Q1

REPORT INFORMATION
  Report Type: Spontaneous
  Country: US (occurrence: US)
  Receive Date: 20170209
  Receipt Date: 20170209
  Transmission Date: 20170428
  Serious: Yes (Other)
  Sender: FDA-Public Use
  Company Number: None

PATIENT
  Age: 48 Year
  Sex: Female

DRUGS (11)
  1. PEPCID [Concomitant]
     Active Substance: FAMOTIDINE
  2. DOXEPIN (SINEQUAN) [Concomitant]
  3. NORCO [Concomitant]
     Active Substance: ACETAMINOPHEN\HYDROCODONE BITARTRATE
  4. NICOTINE TRANSDERMAL (NICRODERM 14MG) [Concomitant]
  5. MONTELUKAST SODIUM (SINGULAIR) [Concomitant]
  6. DIPHENHYDRAMINE (BENADRYL) [Concomitant]
  7. ALBUTEROL SULFATE (PROAIR HFA) [Concomitant]
  8. SERTRALINE HCL (ZOLOFT) [Concomitant]
  9. DOCUSATE SODIUM/SENNA (SENNA-PLUS 50 MG-8.6 MG) [Concomitant]
  10. OXALIPLATIN. [Suspect]
     Active Substance: OXALIPLATIN
     Indication: COLON CANCER
     Dosage: ?          OTHER FREQUENCY:EVERY 14 DAYS;?
     Route: 041
     Dates: start: 20170207, end: 20170207
  11. FLUTICASONE (ADVAIR DISKUS) [Concomitant]

REACTIONS (1)
  - Hypersensitivity [None]

NARRATIVE: CASE EVENT DATE: 20170207
